FAERS Safety Report 5935961-2 (Version None)
Quarter: 2008Q4

REPORT INFORMATION
  Report Type: 
  Country: None (occurrence: None)
  Receive Date: 20081030
  Receipt Date: 20081023
  Transmission Date: 20090506
  Serious: Yes (Other)
  Sender: FDA-Public Use
  Company Number: B0543022A

PATIENT
  Age: 66 Year
  Sex: Male

DRUGS (2)
  1. NICORETTE [Suspect]
     Indication: SMOKING CESSATION THERAPY
     Route: 055
  2. SPIRIVA [Concomitant]
     Indication: EMPHYSEMA
     Route: 055

REACTIONS (2)
  - INFLAMMATION [None]
  - LYMPHADENOPATHY [None]
